FAERS Safety Report 9102801 (Version 2)
Quarter: 2013Q1

REPORT INFORMATION
  Report Type: Spontaneous
  Country: GB (occurrence: GB)
  Receive Date: 20130219
  Receipt Date: 20130314
  Transmission Date: 20140127
  Serious: Yes (Death)
  Sender: FDA-Public Use
  Company Number: GB-JNJFOC-20130205957

PATIENT
  Sex: 0

DRUGS (4)
  1. RISPERIDONE CONSTA [Suspect]
     Indication: PSYCHOTIC DISORDER
     Dosage: FOR 6 MONTHS
     Route: 030
  2. RISPERIDONE CONSTA [Suspect]
     Indication: SCHIZOPHRENIA
     Dosage: FOR 6 MONTHS
     Route: 030
  3. ANTIPSYCHOTIC MEDICATION [Suspect]
     Indication: SCHIZOPHRENIA
     Route: 065
  4. ANTIPSYCHOTIC MEDICATION [Suspect]
     Indication: PSYCHOTIC DISORDER
     Route: 065

REACTIONS (1)
  - Death [Fatal]
